FAERS Safety Report 23568490 (Version 2)
Quarter: 2024Q1

REPORT INFORMATION
  Report Type: Spontaneous
  Country: US (occurrence: US)
  Receive Date: 20240227
  Receipt Date: 20240329
  Transmission Date: 20240410
  Serious: Yes (Life-Threatening, Hospitalization, Other)
  Sender: FDA-Public Use
  Company Number: US-SA-SAC20240223000146

PATIENT
  Age: 17 Year
  Sex: Male

DRUGS (13)
  1. REZUROCK [Suspect]
     Active Substance: BELUMOSUDIL
     Indication: Chronic graft versus host disease
     Dosage: 200 MG, QD
     Route: 048
     Dates: start: 20231006, end: 20231031
  2. REZUROCK [Suspect]
     Active Substance: BELUMOSUDIL
     Dosage: 200 MG, QD
     Route: 048
     Dates: start: 20231120, end: 20231204
  3. TACROLIMUS [Concomitant]
     Active Substance: TACROLIMUS
     Indication: Graft versus host disease
     Dosage: 1 MG, BID
     Route: 048
     Dates: start: 2017
  4. AZITHROMYCIN ANHYDROUS [Concomitant]
     Active Substance: AZITHROMYCIN ANHYDROUS
     Indication: Graft versus host disease in lung
     Dosage: 500 MG, QD
     Route: 048
     Dates: start: 2018
  5. SINGULAIR [Concomitant]
     Active Substance: MONTELUKAST SODIUM
     Indication: Graft versus host disease in lung
     Dosage: 100 MG, Q5H
     Dates: start: 2018
  6. PREDNISONE [Concomitant]
     Active Substance: PREDNISONE
     Indication: Graft versus host disease
     Dosage: 2.5 MG, QD
     Route: 048
     Dates: start: 2018
  7. FLUCONAZOLE [Concomitant]
     Active Substance: FLUCONAZOLE
     Indication: Antifungal prophylaxis
     Dosage: 100 MG, QD
     Route: 048
     Dates: start: 2017
  8. ACYCLOVIR [Concomitant]
     Active Substance: ACYCLOVIR
     Indication: Antiviral prophylaxis
     Dosage: 800 MG, BID
     Route: 048
     Dates: start: 2017
  9. PENVIK [Concomitant]
     Indication: Antibiotic prophylaxis
     Dosage: 250 MG, BID
     Route: 048
     Dates: start: 2017
  10. BACTRIM [Concomitant]
     Active Substance: SULFAMETHOXAZOLE\TRIMETHOPRIM
     Indication: Prophylaxis
     Dosage: 140 MG, BID
     Route: 048
     Dates: start: 2018
  11. SYMBICORT [Concomitant]
     Active Substance: BUDESONIDE\FORMOTEROL FUMARATE DIHYDRATE
     Indication: Graft versus host disease in lung
     Dosage: UNK UNK, BID (2 PUFFS BID)
     Route: 055
     Dates: start: 2018
  12. FAMOTIDINE [Concomitant]
     Active Substance: FAMOTIDINE
     Indication: Prophylaxis
     Dosage: 20 MG, BID
     Route: 048
     Dates: start: 2017
  13. VITAMIN D NOS [Concomitant]
     Active Substance: VITAMIN D NOS
     Indication: Supplementation therapy
     Dosage: 50000 UNK, QW (50000 UNITS)
     Route: 048

REACTIONS (6)
  - Pulmonary embolism [Unknown]
  - Abdominal discomfort [Recovered/Resolved]
  - Chest pain [Unknown]
  - Blood creatinine increased [Unknown]
  - Headache [Not Recovered/Not Resolved]
  - Dyspnoea [Unknown]

NARRATIVE: CASE EVENT DATE: 20231031
